FAERS Safety Report 6152205-X (Version None)
Quarter: 2009Q2

REPORT INFORMATION
  Report Type: 
  Country: None (occurrence: None)
  Receive Date: 20090410
  Receipt Date: 20090112
  Transmission Date: 20091009
  Serious: No
  Sender: FDA-Public Use
  Company Number: US-ASTRAZENECA-2009UW00946

PATIENT
  Sex: Female

DRUGS (3)
  1. ATENOLOL [Suspect]
     Route: 048
     Dates: start: 20020101
  2. NORVASC [Concomitant]
  3. DYAZIDE [Concomitant]

REACTIONS (1)
  - DYSPHONIA [None]
